FAERS Safety Report 6312473-8 (Version None)
Quarter: 2009Q3

REPORT INFORMATION
  Report Type: 
  Country: None (occurrence: None)
  Receive Date: 20090813
  Receipt Date: 20090811
  Transmission Date: 20100115
  Serious: Yes (Disabling)
  Sender: FDA-Public Use
  Company Number: SP02418

PATIENT
  Age: 65 Year
  Sex: Female

DRUGS (1)
  1. MOVIPREP [Suspect]
     Indication: COLONOSCOPY
     Dosage: ORAL
     Route: 048
     Dates: start: 20090605, end: 20090605

REACTIONS (6)
  - ASTHENIA [None]
  - BLOOD ELECTROLYTES DECREASED [None]
  - DEHYDRATION [None]
  - MIGRAINE [None]
  - RETCHING [None]
  - VOMITING [None]
